FAERS Safety Report 7399717-9 (Version None)
Quarter: 2011Q2

REPORT INFORMATION
  Report Type: 
  Country: None (occurrence: None)
  Receive Date: 20110407
  Receipt Date: 20110331
  Transmission Date: 20111010
  Serious: Yes (Death, Hospitalization, Other)
  Sender: FDA-Public Use
  Company Number: US-SANOFI-AVENTIS-2011SA020481

PATIENT
  Age: 45 Year
  Sex: Female

DRUGS (9)
  1. ELOXATIN [Suspect]
     Dosage: EVERY 2 WEEKS FOR 12 CYCLES
     Route: 051
     Dates: start: 20110221, end: 20110221
  2. LEUCOVORIN [Suspect]
     Indication: COLON CANCER
     Dosage: EVERY 2 WEEKS FOR 12 CYCLES
     Route: 051
     Dates: start: 20101229, end: 20101229
  3. ELOXATIN [Suspect]
     Indication: COLON CANCER
     Dosage: EVERY 2 WEEKS FOR 12 CYCLES
     Route: 051
     Dates: start: 20101229, end: 20101229
  4. LEUCOVORIN [Suspect]
     Dosage: EVERY 2 WEEKS FOR 12 CYCLES
     Route: 051
     Dates: start: 20110221, end: 20110221
  5. DIPHENHYDRAMINE HCL [Concomitant]
     Indication: PREMEDICATION
  6. FLUOROURACIL [Suspect]
     Indication: COLON CANCER
     Dosage: EVERY 2 WEEKS FOR 12 CYCLES
     Route: 051
     Dates: start: 20101229
  7. FLUOROURACIL [Suspect]
     Dosage: EVERY 2 WEEKS FOR 12 CYCLES
     Route: 051
     Dates: start: 20100221, end: 20100223
  8. HEPARIN [Concomitant]
  9. ALOXI [Concomitant]
     Indication: PREMEDICATION

REACTIONS (3)
  - ELECTROCARDIOGRAM QT PROLONGED [None]
  - ARRHYTHMIA [None]
  - DEEP VEIN THROMBOSIS [None]
